FAERS Safety Report 7874713 (Version 4)
Quarter: 2019Q4

REPORT INFORMATION
  Report Type: Report from Study
  Country: JP (occurrence: JP)
  Receive Date: 20110328
  Receipt Date: 20191126
  Transmission Date: 20200122
  Serious: Yes (Death, Life-Threatening, Other)
  Sender: FDA-Public Use
  Company Number: JP-AMGEN-JPNCT2011006395

PATIENT
  Age: 49 Year
  Sex: Male
  Weight: 67.4 kg

DRUGS (5)
  1. FLUOROURACIL. [Concomitant]
     Active Substance: FLUOROURACIL
     Indication: COLORECTAL CANCER
     Dosage: 750 MILLIGRAM, QWK
     Route: 040
     Dates: start: 20110112, end: 20110113
  2. PANITUMUMAB [Suspect]
     Active Substance: PANITUMUMAB
     Indication: COLORECTAL CANCER
     Dosage: 430 MILLIGRAM, Q2WK
     Route: 041
     Dates: start: 20110112, end: 20110112
  3. IRINOTECAN HYDROCHLORIDE. [Suspect]
     Active Substance: IRINOTECAN HYDROCHLORIDE
     Indication: COLORECTAL CANCER
     Dosage: 280 MILLIGRAM, Q2WK
     Route: 041
     Dates: start: 20110112, end: 20110112
  4. FLUOROURACIL. [Concomitant]
     Active Substance: FLUOROURACIL
     Dosage: 2250 MILLIGRAM
     Route: 041
     Dates: start: 20110112, end: 20110114
  5. LEUCOVORIN [CALCIUM FOLINATE] [Concomitant]
     Active Substance: LEUCOVORIN
     Indication: COLORECTAL CANCER
     Dosage: 200 MILLIGRAM, QWK
     Route: 041
     Dates: start: 20110112, end: 20110113

REACTIONS (1)
  - Interstitial lung disease [Fatal]

NARRATIVE: CASE EVENT DATE: 20110121
